FAERS Safety Report 6047042-0 (Version None)
Quarter: 2009Q1

REPORT INFORMATION
  Report Type: 
  Country: None (occurrence: None)
  Receive Date: 20090122
  Receipt Date: 20090115
  Transmission Date: 20090719
  Serious: Yes (Other)
  Sender: FDA-Public Use
  Company Number: JP-ASTRAZENECA-2008AP09473

PATIENT
  Age: 72 Year
  Sex: Female
  Weight: 60 kg

DRUGS (9)
  1. XYLOCAINE [Suspect]
     Indication: LOCAL ANAESTHESIA
     Dosage: LIQUID MEDICINE FOR INTERNAL USE
     Route: 049
     Dates: start: 20081202, end: 20081202
  2. XYLOCAINE [Suspect]
     Dosage: LIQUID MEDICINE FOR EXTERNAL USE
     Route: 049
     Dates: start: 20081202, end: 20081202
  3. ATARAX [Concomitant]
     Indication: PREMEDICATION
     Route: 030
     Dates: start: 20081202, end: 20081202
  4. OPYSTAN [Concomitant]
     Dosage: DOSE UNKNOWN
     Route: 065
  5. POTACOL-R [Concomitant]
     Indication: PREMEDICATION
     Route: 042
     Dates: start: 20081202, end: 20081202
  6. SIMVASTATIN [Concomitant]
     Indication: HYPERLIPIDAEMIA
     Route: 048
     Dates: start: 20040614
  7. CONIEL [Concomitant]
     Indication: HYPERTENSION
     Route: 048
     Dates: start: 20040604
  8. NU-LOTAN [Concomitant]
     Indication: HYPERTENSION
     Route: 048
     Dates: start: 20050926
  9. MAINTATE [Concomitant]
     Indication: HYPERTENSION
     Route: 048
     Dates: start: 20060619

REACTIONS (1)
  - BRONCHOSPASM [None]
